FAERS Safety Report 18279840 (Version 2)
Quarter: 2020Q4

REPORT INFORMATION
  Report Type: Spontaneous
  Country: US (occurrence: US)
  Receive Date: 20200917
  Receipt Date: 20201026
  Transmission Date: 20210113
  Serious: Yes (Other)
  Sender: FDA-Public Use
  Company Number: NVSC2020US246909

PATIENT
  Age: 68 Year
  Sex: Male

DRUGS (1)
  1. COSENTYX [Suspect]
     Active Substance: SECUKINUMAB
     Indication: PSORIASIS
     Dosage: 300 MG/KG, QW
     Route: 058
     Dates: start: 20200809

REACTIONS (3)
  - Paraesthesia [Unknown]
  - Asthenia [Unknown]
  - Burning sensation [Unknown]

NARRATIVE: CASE EVENT DATE: 20200815
